FAERS Safety Report 7398414-3 (Version None)
Quarter: 2011Q2

REPORT INFORMATION
  Report Type: 
  Country: None (occurrence: None)
  Receive Date: 20110406
  Receipt Date: 20110323
  Transmission Date: 20111010
  Serious: Yes (Other)
  Sender: FDA-Public Use
  Company Number: GR-MYLANLABS-2011S1006333

PATIENT
  Age: 80 Year
  Sex: Female

DRUGS (1)
  1. CIPROFLOXACIN [Suspect]
     Indication: ANTIBIOTIC PROPHYLAXIS
     Route: 042

REACTIONS (1)
  - KOUNIS SYNDROME [None]
